FAERS Safety Report 7015876-1 (Version None)
Quarter: 2010Q3

REPORT INFORMATION
  Report Type: 
  Country: None (occurrence: None)
  Receive Date: 20100927
  Receipt Date: 20091130
  Transmission Date: 20110219
  Serious: No
  Sender: FDA-Public Use
  Company Number: US-ASTRAZENECA-2009SE29458

PATIENT
  Age: 74 Year
  Sex: Female
  Weight: 98.4 kg

DRUGS (15)
  1. ARIMIDEX [Suspect]
     Indication: BREAST CANCER
     Route: 048
     Dates: start: 20091001
  2. GLIPIZIDE [Concomitant]
  3. JANUVIA [Concomitant]
  4. WARFARIN [Concomitant]
  5. DITIAZEM [Concomitant]
  6. LISINOPRIL [Concomitant]
  7. ALLOPURINOL [Concomitant]
  8. LEVOTHYROXONE [Concomitant]
  9. CELEXA [Concomitant]
  10. DIGOXIN [Concomitant]
  11. SPRONOLACT [Concomitant]
  12. TRICOR [Concomitant]
  13. PREVACID [Concomitant]
  14. FOLIC ACID [Concomitant]
  15. TORSEMIDE [Concomitant]

REACTIONS (10)
  - BLOOD GLUCOSE INCREASED [None]
  - BLOOD PRESSURE INCREASED [None]
  - COUGH [None]
  - DIZZINESS [None]
  - FATIGUE [None]
  - HEART RATE INCREASED [None]
  - INCORRECT DOSE ADMINISTERED [None]
  - LIVER FUNCTION TEST ABNORMAL [None]
  - MOOD ALTERED [None]
  - OROPHARYNGEAL PAIN [None]
